FAERS Safety Report 11043047 (Version 1)
Quarter: 2015Q2

REPORT INFORMATION
  Report Type: Report from Study
  Country: KR (occurrence: KR)
  Receive Date: 20150417
  Receipt Date: 20150417
  Transmission Date: 20150821
  Serious: Yes (Hospitalization)
  Sender: FDA-Public Use
  Company Number: KR-INVENTIA-000041

PATIENT
  Age: 86 Year
  Sex: Male

DRUGS (1)
  1. METFORMIN [Suspect]
     Active Substance: METFORMIN HYDROCHLORIDE
     Indication: DIABETES MELLITUS

REACTIONS (5)
  - Acute kidney injury [Unknown]
  - Lactic acidosis [Recovered/Resolved]
  - Haemodialysis [None]
  - Blood pressure systolic increased [None]
  - Pneumonia [Not Recovered/Not Resolved]
